FAERS Safety Report 7759442-9 (Version None)
Quarter: 2011Q3

REPORT INFORMATION
  Report Type: 
  Country: None (occurrence: None)
  Receive Date: 20110919
  Receipt Date: 20110912
  Transmission Date: 20111222
  Serious: Yes (Hospitalization)
  Sender: FDA-Public Use
  Company Number: US-ROCHE-798771

PATIENT
  Sex: Male
  Weight: 83.9 kg

DRUGS (18)
  1. BEVACIZUMAB [Suspect]
     Indication: HEAD AND NECK CANCER
     Route: 042
     Dates: start: 20110323
  2. CETUXIMAB [Suspect]
     Route: 042
     Dates: start: 20110504
  3. PEMETREXED [Suspect]
     Indication: HEAD AND NECK CANCER
     Route: 042
     Dates: start: 20110323
  4. FOLIC ACID [Concomitant]
  5. EFFEXOR [Concomitant]
  6. CETUXIMAB [Suspect]
     Indication: HEAD AND NECK CANCER
     Dosage: LOADING DOSE
     Route: 042
     Dates: start: 20110316
  7. PEMETREXED [Suspect]
     Route: 042
     Dates: start: 20110413
  8. MAGIC SWIZZLE (DIPHENHYDRAMINE HYDROCHLORIDE/LIDOCAINE/MYLANTA) [Concomitant]
  9. CETUXIMAB [Suspect]
     Dosage: DATE OF LAST DOSE: 27 APRIL 2011
     Route: 042
  10. PROTONIX [Concomitant]
  11. BEVACIZUMAB [Suspect]
     Route: 042
     Dates: start: 20110413
  12. DOCUSATE SODIUM/SENNA [Concomitant]
  13. PEMETREXED [Suspect]
     Route: 042
     Dates: start: 20110504
  14. CIPROFLOXACIN [Concomitant]
  15. BEVACIZUMAB [Suspect]
     Route: 042
     Dates: start: 20110505
  16. DOXYCYCLINE [Concomitant]
  17. HYDROMORPHONE [Concomitant]
  18. SENNA [Concomitant]

REACTIONS (7)
  - STOMATITIS [None]
  - NAUSEA [None]
  - OROPHARYNGEAL PAIN [None]
  - DEHYDRATION [None]
  - TACHYCARDIA [None]
  - MUCOSAL INFLAMMATION [None]
  - MALNUTRITION [None]
